FAERS Safety Report 4346584-3 (Version None)
Quarter: 2004Q1

REPORT INFORMATION
  Report Type: 
  Country: None (occurrence: None)
  Receive Date: 20040325
  Receipt Date: 20040220
  Transmission Date: 20041129
  Serious: No
  Sender: FDA-Public Use
  Company Number: USA030536907

PATIENT
  Age: 51 Year
  Sex: Female
  Weight: 43 kg

DRUGS (18)
  1. FORTEO [Suspect]
     Indication: OSTEOPOROSIS
     Dosage: 20 UG DAY
     Dates: start: 20030210, end: 20040205
  2. ACIDOPHILUS [Concomitant]
  3. ATENOLOL [Concomitant]
  4. CELLCEPT [Concomitant]
  5. CORAL CALCIUM DAILY [Concomitant]
  6. COUMADIN [Concomitant]
  7. DILTIAZEM [Concomitant]
  8. DITROPAN XL [Concomitant]
  9. FLAX SEED OIL [Concomitant]
  10. HYZAAR [Concomitant]
  11. OXYBUTYN (OXYBUTYNIN HYDROCHLORIDE) [Concomitant]
  12. PLAQUENIL [Concomitant]
  13. PREDNISONE [Concomitant]
  14. PREMPHASE 14/14 [Concomitant]
  15. VIOXX [Concomitant]
  16. ZOLOFT [Concomitant]
  17. CARDIZEM CD [Concomitant]
  18. VICODIN [Concomitant]

REACTIONS (16)
  - ARTHRALGIA [None]
  - DIZZINESS [None]
  - DYSPHAGIA [None]
  - FINGER DEFORMITY [None]
  - GOITRE [None]
  - HEADACHE [None]
  - JOINT SWELLING [None]
  - LIGAMENT LAXITY [None]
  - MASS [None]
  - MOBILITY DECREASED [None]
  - MUSCLE CRAMP [None]
  - MUSCLE SPASMS [None]
  - MUSCULOSKELETAL STIFFNESS [None]
  - NAUSEA [None]
  - OROPHARYNGEAL SWELLING [None]
  - PAIN IN EXTREMITY [None]
